FAERS Safety Report 8318722-9 (Version None)
Quarter: 2012Q2

REPORT INFORMATION
  Report Type: 
  Country: None (occurrence: None)
  Receive Date: 20120427
  Receipt Date: 20120416
  Transmission Date: 20120825
  Serious: Yes (Hospitalization, Other)
  Sender: FDA-Public Use
  Company Number: US-JNJFOC-20120407730

PATIENT
  Sex: Female
  Weight: 67.13 kg

DRUGS (1)
  1. REMICADE [Suspect]
     Indication: RHEUMATOID ARTHRITIS
     Route: 042
     Dates: end: 20120301

REACTIONS (10)
  - DEVICE RELATED INFECTION [None]
  - BODY TEMPERATURE INCREASED [None]
  - HERPES ZOSTER [None]
  - MALAISE [None]
  - CLAVICLE FRACTURE [None]
  - PNEUMONIA [None]
  - VOMITING [None]
  - RIB FRACTURE [None]
  - SEPSIS [None]
  - SHUNT INFECTION [None]
